FAERS Safety Report 8327937-5 (Version None)
Quarter: 2012Q2

REPORT INFORMATION
  Report Type: 
  Country: None (occurrence: None)
  Receive Date: 20120502
  Receipt Date: 20120424
  Transmission Date: 20120825
  Serious: Yes (Other)
  Sender: FDA-Public Use
  Company Number: US-CELGENEUS-163-21660-12032437

PATIENT
  Sex: Male
  Weight: 105.19 kg

DRUGS (24)
  1. NOVOLOG [Concomitant]
     Dosage: SLIDING SCALE
     Route: 065
  2. PROVENTIL-HFA [Concomitant]
     Dosage: 2 PUFFS
     Route: 065
  3. ATROVENT [Concomitant]
     Dosage: 0.018MG/ACT, 2 PUFFS
     Route: 055
  4. SUPER B COMPLEX [Concomitant]
     Dosage: 1 TABLET
     Route: 048
  5. PROMETHAZINE [Concomitant]
     Dosage: 25 MILLIGRAM
     Route: 061
  6. MUCINEX [Concomitant]
     Dosage: 600 MILLIGRAM
     Route: 065
  7. METOLAZONE [Concomitant]
     Route: 065
  8. SPIRONOLACTONE [Concomitant]
     Route: 065
  9. LANTUS [Concomitant]
     Dosage: 20UNITS/15UNTS
     Route: 058
  10. ABRAXANE [Suspect]
     Indication: LUNG CANCER METASTATIC
     Route: 041
     Dates: start: 20111020, end: 20120215
  11. MAGNESIUM OXIDE [Concomitant]
     Dosage: 400 MILLIGRAM
     Route: 065
  12. TYLENOL (CAPLET) [Concomitant]
     Dosage: 1-2 TABLETS
     Route: 048
  13. CALTRATE + VITAMIN D [Concomitant]
     Dosage: 600 + 200 UNITS, 1 TABLET
     Route: 065
  14. ADVAIR DISKUS 100/50 [Concomitant]
     Dosage: 500/50, 1 PUFF
     Route: 065
  15. MULTI-VITAMINS [Concomitant]
     Route: 065
  16. VITAMIN B6 [Concomitant]
     Dosage: 100 MILLIGRAM
     Route: 065
  17. METOPROLOL TARTRATE [Concomitant]
     Dosage: 25 MILLIGRAM
     Route: 065
  18. OMEPRAZOLE [Concomitant]
     Dosage: 20 MILLIGRAM
     Route: 061
  19. ZITHROMAX [Concomitant]
     Dosage: 500 MILLIGRAM
     Route: 065
  20. COLACE [Concomitant]
     Dosage: 100 MILLIGRAM
     Route: 065
  21. TRAZODONE HCL [Concomitant]
     Dosage: 100 MILLIGRAM
     Route: 065
  22. TAMSULOSIN HCL [Concomitant]
     Dosage: .4 MILLIGRAM
     Route: 065
  23. FUROSEMIDE [Concomitant]
     Dosage: 40 MILLIGRAM
     Route: 065
  24. ONDANSETRON [Concomitant]
     Dosage: 8 MILLIGRAM
     Route: 065

REACTIONS (1)
  - GLOMERULAR FILTRATION RATE DECREASED [None]
